FAERS Safety Report 11103105 (Version 2)
Quarter: 2015Q2

REPORT INFORMATION
  Report Type: Other
  Country: IT (occurrence: IT)
  Receive Date: 20150511
  Receipt Date: 20150608
  Transmission Date: 20150821
  Serious: Yes (Other)
  Sender: FDA-Public Use
  Company Number: IT-MYLANLABS-2015M1014873

PATIENT

DRUGS (1)
  1. LEVOFLOXACINA [Suspect]
     Active Substance: LEVOFLOXACIN
     Indication: PNEUMONITIS
     Dosage: 750 MG, QD
     Route: 048
     Dates: start: 20150414

REACTIONS (3)
  - Malaise [Recovering/Resolving]
  - Erythema [Recovering/Resolving]
  - Psychomotor hyperactivity [Recovering/Resolving]

NARRATIVE: CASE EVENT DATE: 20150416
